FAERS Safety Report 5098288-X (Version None)
Quarter: 2006Q3

REPORT INFORMATION
  Report Type: 
  Country: None (occurrence: None)
  Receive Date: 20060906
  Receipt Date: 20060626
  Transmission Date: 20061208
  Serious: No
  Sender: FDA-Public Use
  Company Number: US-GLAXOSMITHKLINE-A0610324A

PATIENT
  Age: 75 Year
  Sex: Female

DRUGS (5)
  1. REQUIP [Suspect]
     Indication: RESTLESS LEGS SYNDROME
     Dosage: .0125MG AT NIGHT
     Route: 048
     Dates: start: 20060622, end: 20060623
  2. NEURONTIN [Concomitant]
  3. VALIUM [Concomitant]
  4. INDERAL [Concomitant]
  5. THYROID TAB [Concomitant]

REACTIONS (1)
  - INSOMNIA [None]
